FAERS Safety Report 9302000 (Version 9)
Quarter: 2016Q1

REPORT INFORMATION
  Report Type: Spontaneous
  Country: US (occurrence: US)
  Receive Date: 20130521
  Receipt Date: 20160120
  Transmission Date: 20160526
  Serious: Yes (Disabling)
  Sender: FDA-Public Use
  Company Number: US-009507513-1305USA012239

PATIENT
  Sex: Male
  Weight: 81.63 kg

DRUGS (3)
  1. FINASTERIDE. [Suspect]
     Active Substance: FINASTERIDE
     Dosage: 5 MG, QD
     Route: 048
     Dates: start: 20080228, end: 20080428
  2. PROPECIA [Suspect]
     Active Substance: FINASTERIDE
     Dosage: 1 MG QD
     Route: 048
     Dates: start: 200611, end: 200612
  3. PROPECIA [Suspect]
     Active Substance: FINASTERIDE
     Indication: ALOPECIA
     Dosage: 1 MG, QD
     Route: 048
     Dates: start: 1998, end: 20061109

REACTIONS (31)
  - Painful ejaculation [Unknown]
  - Epididymitis [Not Recovered/Not Resolved]
  - Colloid brain cyst [Unknown]
  - Nipple pain [Not Recovered/Not Resolved]
  - Fall [Unknown]
  - Head injury [Unknown]
  - Benign prostatic hyperplasia [Not Recovered/Not Resolved]
  - Sexual dysfunction [Not Recovered/Not Resolved]
  - Depression [Not Recovered/Not Resolved]
  - Testis discomfort [Unknown]
  - Limb injury [Not Recovered/Not Resolved]
  - Penis injury [Unknown]
  - Fatigue [Recovering/Resolving]
  - Nipple pain [Unknown]
  - Endocrine disorder [Unknown]
  - Anxiety [Not Recovered/Not Resolved]
  - Neuralgia [Not Recovered/Not Resolved]
  - Brain injury [Unknown]
  - Perineal pain [Unknown]
  - Fall [Unknown]
  - Hydrocele [Recovered/Resolved]
  - Gynaecomastia [Unknown]
  - Hydrocele [Unknown]
  - Varicocele [Recovered/Resolved]
  - Hypogonadism [Not Recovered/Not Resolved]
  - Hypotonic urinary bladder [Unknown]
  - Vasectomy [Unknown]
  - Back pain [Not Recovered/Not Resolved]
  - Testicular pain [Not Recovered/Not Resolved]
  - Erectile dysfunction [Not Recovered/Not Resolved]
  - Libido decreased [Unknown]

NARRATIVE: CASE EVENT DATE: 1999
